FAERS Safety Report 4429968-4 (Version None)
Quarter: 2004Q3

REPORT INFORMATION
  Report Type: 
  Country: None (occurrence: None)
  Receive Date: 20040816
  Receipt Date: 20040803
  Transmission Date: 20050211
  Serious: Yes (Hospitalization, Other)
  Sender: FDA-Public Use
  Company Number: 2004042761

PATIENT
  Age: 81 Year
  Sex: Female
  Weight: 60 kg

DRUGS (12)
  1. ATORVASTATIN CALCIUM [Suspect]
     Indication: CORONARY ANGIOPLASTY
     Dosage: 20 MG (1 IN 1 D), ORAL
     Route: 048
     Dates: start: 20040616, end: 20040622
  2. DIHYDROERGOCRYPTINE ALFA-MESILATE (DIHYDROERGOCRYPTINE ALFA-MESILATE) [Suspect]
     Indication: ILL-DEFINED DISORDER
     Dosage: 20 MG
  3. DIHYDROERGOTAMINE MESYLATE [Suspect]
     Indication: ILL-DEFINED DISORDER
  4. ASPIRIN [Concomitant]
  5. CLOPIDOGREL (CLOPIDOGREL) [Concomitant]
  6. METOPROLOL TARTRATE [Concomitant]
  7. RAMIPRIL [Concomitant]
  8. HYDROCHLOROTHIAZIDE [Concomitant]
  9. LEVODOPA (LEVODOPA) [Concomitant]
  10. BENSERAZIDE (BENSERAZIDE) [Concomitant]
  11. DIHYDROERGOCRYPTINE (DIHYDROERGOCRYPTINE) [Concomitant]
  12. INSULIN (INSULLIN) [Concomitant]

REACTIONS (11)
  - ATRIAL FIBRILLATION [None]
  - BLOOD CHOLESTEROL INCREASED [None]
  - BLOOD GLUCOSE INCREASED [None]
  - BLOOD TRIGLYCERIDES INCREASED [None]
  - CHEST DISCOMFORT [None]
  - DRUG INTERACTION [None]
  - ELECTROCARDIOGRAM ST SEGMENT DEPRESSION [None]
  - PAIN [None]
  - PARESIS [None]
  - RHABDOMYOLYSIS [None]
  - SENSORY DISTURBANCE [None]
